FAERS Safety Report 23845440 (Version 4)
Quarter: 2024Q3

REPORT INFORMATION
  Report Type: Spontaneous
  Country: US (occurrence: US)
  Receive Date: 20240511
  Receipt Date: 20240822
  Transmission Date: 20241016
  Serious: No
  Sender: TRAVERE THERAPEUTICS
  Company Number: US-TRAVERE-2024TVT00408

PATIENT
  Sex: Female

DRUGS (8)
  1. FILSPARI [Suspect]
     Active Substance: SPARSENTAN
     Indication: IgA nephropathy
     Route: 048
  2. FILSPARI [Suspect]
     Active Substance: SPARSENTAN
     Indication: Hypotension
     Route: 048
     Dates: start: 20240415
  3. FILSPARI [Suspect]
     Active Substance: SPARSENTAN
     Indication: Chronic kidney disease
     Route: 048
     Dates: start: 20240615
  4. FILSPARI [Suspect]
     Active Substance: SPARSENTAN
     Indication: Haematuria
  5. CARVEDILOL [Concomitant]
     Active Substance: CARVEDILOL
  6. FARXIGA [Concomitant]
     Active Substance: DAPAGLIFLOZIN PROPANEDIOL
  7. ULORIC [Concomitant]
     Active Substance: FEBUXOSTAT
  8. VASCEPA [Concomitant]
     Active Substance: ICOSAPENT ETHYL

REACTIONS (5)
  - Swelling [Unknown]
  - Dizziness [None]
  - Blood pressure systolic decreased [None]
  - Pruritus [None]
  - Wrong technique in product usage process [Unknown]
